FAERS Safety Report 7603478-5 (Version None)
Quarter: 2011Q3

REPORT INFORMATION
  Report Type: 
  Country: None (occurrence: None)
  Receive Date: 20110712
  Receipt Date: 20110629
  Transmission Date: 20111222
  Serious: Yes (Other)
  Sender: FDA-Public Use
  Company Number: ES-JNJFOC-20110700910

PATIENT
  Age: 70 Day
  Sex: Female

DRUGS (2)
  1. ACETAMINOPHEN [Suspect]
     Indication: RADICULAR PAIN
     Route: 063
  2. ACETAMINOPHEN [Suspect]
     Route: 063

REACTIONS (2)
  - WHEEZING [None]
  - EXPOSURE DURING BREAST FEEDING [None]
